FAERS Safety Report 11931360 (Version 2)
Quarter: 2017Q1

REPORT INFORMATION
  Report Type: Spontaneous
  Country: US (occurrence: US)
  Receive Date: 20160120
  Receipt Date: 20170314
  Transmission Date: 20170428
  Serious: No
  Sender: FDA-Public Use
  Company Number: US-INCYTE CORPORATION-2015IN005368

PATIENT
  Sex: Male

DRUGS (8)
  1. JAKAFI [Suspect]
     Active Substance: RUXOLITINIB
     Dosage: 15 MG, BID
     Route: 048
     Dates: start: 20150130
  2. ELDERBERRY                         /01651601/ [Concomitant]
  3. LIVEROIL [Concomitant]
     Active Substance: FISH OIL
  4. ATENOLOL. [Concomitant]
     Active Substance: ATENOLOL
  5. ASPIRIN. [Concomitant]
     Active Substance: ASPIRIN
  6. VITAMIN D                          /00107901/ [Concomitant]
     Active Substance: ERGOCALCIFEROL
     Indication: PRODUCT USED FOR UNKNOWN INDICATION
  7. JAKAFI [Suspect]
     Active Substance: RUXOLITINIB
     Dosage: 15 MG, BID
     Route: 048
  8. VITAMIN D3 [Concomitant]
     Active Substance: CHOLECALCIFEROL

REACTIONS (7)
  - Red blood cell count abnormal [Unknown]
  - Overweight [Unknown]
  - Dyspnoea exertional [Unknown]
  - Pruritus [Unknown]
  - Rash [Unknown]
  - White blood cell count abnormal [Unknown]
  - Platelet count abnormal [Unknown]
